FAERS Safety Report 25145920 (Version 1)
Quarter: 2025Q2

REPORT INFORMATION
  Report Type: Spontaneous
  Country: US (occurrence: None)
  Receive Date: 20250331
  Receipt Date: 20250331
  Transmission Date: 20250717
  Serious: Yes (Life-Threatening, Hospitalization, Other)
  Sender: FDA-CTU
  Company Number: None

PATIENT
  Age: 69 Year
  Sex: Female
  Weight: 76.66 kg

DRUGS (1)
  1. KRYSTEXXA [Suspect]
     Active Substance: PEGLOTICASE
     Indication: Gout
     Route: 041
     Dates: start: 20250329, end: 20250329

REACTIONS (4)
  - Dizziness [None]
  - Unresponsive to stimuli [None]
  - Cyanosis [None]
  - Agonal respiration [None]

NARRATIVE: CASE EVENT DATE: 20250329
